FAERS Safety Report 20141082 (Version 1)
Quarter: 2021Q4

REPORT INFORMATION
  Report Type: Spontaneous
  Country: CN (occurrence: CN)
  Receive Date: 20211202
  Receipt Date: 20211202
  Transmission Date: 20220303
  Serious: Yes (Disabling)
  Sender: FDA-Public Use
  Company Number: CN-NOVARTISPH-NVSC2021CN273582

PATIENT
  Age: 75 Year
  Sex: Male
  Weight: 50 kg

DRUGS (6)
  1. ROSUVASTATIN CALCIUM [Suspect]
     Active Substance: ROSUVASTATIN CALCIUM
     Indication: Cerebral infarction
     Dosage: 20 MG, QD
     Route: 048
     Dates: start: 20211024, end: 20211103
  2. CLOPIDOGREL BISULFATE [Suspect]
     Active Substance: CLOPIDOGREL BISULFATE
     Indication: Cerebral infarction
     Dosage: 75 MG, QD
     Route: 048
     Dates: start: 20211024, end: 20211103
  3. BUTYLPHTHALIDE [Suspect]
     Active Substance: BUTYLPHTHALIDE
     Indication: Cerebral infarction
     Dosage: 0.2 G, TID
     Route: 048
     Dates: start: 20211024, end: 20211103
  4. PIRACETAM [Suspect]
     Active Substance: PIRACETAM
     Indication: Cerebral infarction
     Dosage: 100 ML, QD
     Route: 041
     Dates: start: 20211024, end: 20211103
  5. CIMETIDINE [Suspect]
     Active Substance: CIMETIDINE
     Indication: Cerebral infarction
     Dosage: 0.2 G, QD
     Route: 041
     Dates: start: 20211024, end: 20211103
  6. ASPIRIN [Suspect]
     Active Substance: ASPIRIN
     Indication: Cerebral infarction
     Dosage: 0.1 G, QD
     Route: 048
     Dates: start: 20211024, end: 20211031

REACTIONS (3)
  - Coagulation time abnormal [Recovering/Resolving]
  - Hepatic function abnormal [Recovering/Resolving]
  - Upper gastrointestinal haemorrhage [Recovering/Resolving]

NARRATIVE: CASE EVENT DATE: 20211030
